FAERS Safety Report 11926781 (Version 1)
Quarter: 2016Q1

REPORT INFORMATION
  Report Type: Spontaneous
  Country: US (occurrence: None)
  Receive Date: 20160115
  Receipt Date: 20160115
  Transmission Date: 20160526
  Serious: Yes (Other)
  Sender: FDA-Public Use
  Company Number: None

PATIENT
  Age: 53 Year
  Sex: Male
  Weight: 74.39 kg

DRUGS (1)
  1. DUTASTERIDE. [Suspect]
     Active Substance: DUTASTERIDE
     Indication: ALOPECIA
     Route: 048

REACTIONS (4)
  - Condition aggravated [None]
  - Alopecia [None]
  - Blood testosterone increased [None]
  - Prostate cancer [None]

NARRATIVE: CASE EVENT DATE: 20120917
